FAERS Safety Report 6726519-6 (Version None)
Quarter: 2010Q2

REPORT INFORMATION
  Report Type: 
  Country: None (occurrence: None)
  Receive Date: 20100514
  Receipt Date: 20100506
  Transmission Date: 20101027
  Serious: Yes (Hospitalization)
  Sender: FDA-Public Use
  Company Number: AT-ELI_LILLY_AND_COMPANY-AT201005001326

PATIENT
  Age: 37 Year
  Sex: Male
  Weight: 88.9 kg

DRUGS (3)
  1. ATOMOXETINE HCL [Suspect]
     Indication: ATTENTION DEFICIT/HYPERACTIVITY DISORDER
     Dosage: 100 MG, DAILY (1/D)
     Route: 048
     Dates: start: 20090722, end: 20090916
  2. BLINDED THERAPY ORAL [Suspect]
     Indication: ATTENTION DEFICIT/HYPERACTIVITY DISORDER
     Dosage: 100 MG, DAILY (1/D)
     Route: 048
     Dates: start: 20091014, end: 20100430
  3. BLINDED THERAPY ORAL [Suspect]
     Dosage: 100 MG, DAILY (1/D)
     Route: 048
     Dates: start: 20100501

REACTIONS (1)
  - APPENDICITIS [None]
